FAERS Safety Report 6694509-8 (Version None)
Quarter: 2010Q2

REPORT INFORMATION
  Report Type: 
  Country: None (occurrence: None)
  Receive Date: 20100423
  Receipt Date: 20100420
  Transmission Date: 20101027
  Serious: Yes (Hospitalization)
  Sender: FDA-Public Use
  Company Number: FR-ASTRAZENECA-2010SE14918

PATIENT
  Sex: Female

DRUGS (1)
  1. NAROPIN [Suspect]
     Dosage: 10 X NORMAL DOSE

REACTIONS (2)
  - OVERDOSE [None]
  - QUADRIPLEGIA [None]
